FAERS Safety Report 24608586 (Version 1)
Quarter: 2024Q4

REPORT INFORMATION
  Report Type: Spontaneous
  Country: CN (occurrence: CN)
  Receive Date: 20241112
  Receipt Date: 20241112
  Transmission Date: 20250115
  Serious: Yes (Other)
  Sender: SANOFI AVENTIS
  Company Number: CN-SA-2024SA326389

PATIENT
  Age: 70 Year
  Sex: Male
  Weight: 57 kg

DRUGS (2)
  1. OXALIPLATIN [Suspect]
     Active Substance: OXALIPLATIN
     Indication: Neoplasm
     Dosage: 200 MG, 1X
     Dates: start: 20241029, end: 20241029
  2. CAPECITABINE [Suspect]
     Active Substance: CAPECITABINE
     Indication: Neoplasm
     Dosage: 200 MG, BID
     Route: 048
     Dates: start: 20241029, end: 20241029

REACTIONS (7)
  - Nausea [Recovered/Resolved]
  - Vomiting [Recovered/Resolved]
  - Dyspepsia [Recovered/Resolved]
  - Gastrooesophageal reflux disease [Recovered/Resolved]
  - Dysphagia [Recovered/Resolved]
  - Infusion site swelling [Recovered/Resolved]
  - Infusion site pain [Recovered/Resolved]

NARRATIVE: CASE EVENT DATE: 20241029
